FAERS Safety Report 6836748-9 (Version None)
Quarter: 2010Q3

REPORT INFORMATION
  Report Type: 
  Country: None (occurrence: None)
  Receive Date: 20100708
  Receipt Date: 20100625
  Transmission Date: 20110219
  Serious: Yes (Other)
  Sender: FDA-Public Use
  Company Number: 7009277

PATIENT
  Age: 68 Year
  Sex: Female

DRUGS (1)
  1. REBIF [Suspect]
     Indication: PRODUCT USED FOR UNKNOWN INDICATION
     Dosage: 44 MCG, 3 IN 1 SUBCUTANEOUS
     Route: 058
     Dates: start: 20030411, end: 20100201

REACTIONS (3)
  - FALL [None]
  - HEAD INJURY [None]
  - OPTIC ISCHAEMIC NEUROPATHY [None]
